FAERS Safety Report 8612372-2 (Version None)
Quarter: 2012Q3

REPORT INFORMATION
  Report Type: 
  Country: None (occurrence: None)
  Receive Date: 20120822
  Receipt Date: 20120814
  Transmission Date: 20120928
  Serious: Yes (Hospitalization, Other)
  Sender: FDA-Public Use
  Company Number: US-ENDO PHARMACEUTICALS INC.-OPCR20121771

PATIENT
  Sex: Female

DRUGS (1)
  1. OPANA ER [Suspect]
     Indication: DRUG ABUSE
     Dosage: N/A
     Dates: start: 20120101, end: 20120101

REACTIONS (7)
  - WRONG TECHNIQUE IN DRUG USAGE PROCESS [None]
  - THROMBOCYTOPENIC PURPURA [None]
  - RENAL FAILURE ACUTE [None]
  - MICROANGIOPATHIC HAEMOLYTIC ANAEMIA [None]
  - INCORRECT ROUTE OF DRUG ADMINISTRATION [None]
  - ENDOCARDITIS [None]
  - DRUG ABUSE [None]
